FAERS Safety Report 15300557 (Version 2)
Quarter: 2018Q3

REPORT INFORMATION
  Report Type: Spontaneous
  Country: BE (occurrence: BE)
  Receive Date: 20180821
  Receipt Date: 20180823
  Transmission Date: 20181010
  Serious: Yes (Life-Threatening, Disabling, Other)
  Sender: FDA-Public Use
  Company Number: PHHY2004BE006430

PATIENT
  Age: 55 Year
  Sex: Female

DRUGS (2)
  1. AMLODIPINE [Concomitant]
     Active Substance: AMLODIPINE BESYLATE
     Indication: HYPERTENSION
     Dosage: 5 MG
     Route: 065
  2. IBUPROFEN. [Suspect]
     Active Substance: IBUPROFEN
     Indication: PRODUCT USED FOR UNKNOWN INDICATION
     Dosage: 48 TABLETS (9.6 G)
     Route: 065

REACTIONS (7)
  - Encephalopathy [Recovered/Resolved]
  - Asthenia [Recovered/Resolved]
  - Overdose [Recovered/Resolved]
  - Hepatitis [Recovered/Resolved]
  - Jaundice [Recovered/Resolved]
  - Hepatic failure [Recovered/Resolved]
  - Hepatitis fulminant [Recovered/Resolved with Sequelae]
